FAERS Safety Report 5708382-5 (Version None)
Quarter: 2008Q2

REPORT INFORMATION
  Report Type: 
  Country: None (occurrence: None)
  Receive Date: 20080417
  Receipt Date: 20080408
  Transmission Date: 20081010
  Serious: Yes (Other)
  Sender: FDA-Public Use
  Company Number: US-ELI_LILLY_AND_COMPANY-US200804002000

PATIENT
  Age: 13 Year
  Sex: Female

DRUGS (4)
  1. HUMATROPE [Suspect]
     Dosage: UNK, UNKNOWN
  2. CORTEF [Concomitant]
     Dosage: UNK, UNKNOWN
  3. DDAVP [Concomitant]
     Dosage: UNK, UNKNOWN
  4. SYNTHROID [Concomitant]
     Dosage: UNK, UNKNOWN

REACTIONS (1)
  - BRAIN NEOPLASM [None]
